FAERS Safety Report 12435537 (Version 1)
Quarter: 2016Q2

REPORT INFORMATION
  Report Type: Spontaneous
  Country: US (occurrence: US)
  Receive Date: 20160603
  Receipt Date: 20160603
  Transmission Date: 20160815
  Serious: No
  Sender: FDA-Public Use
  Company Number: US-ROCHE-1605299

PATIENT
  Sex: Female

DRUGS (1)
  1. XELODA [Suspect]
     Active Substance: CAPECITABINE
     Indication: PRODUCT USED FOR UNKNOWN INDICATION
     Dosage: 3 QAM 3 QPM AFTER DINNER
     Route: 065

REACTIONS (6)
  - Skin exfoliation [Unknown]
  - Abdominal distension [Unknown]
  - Defaecation urgency [Unknown]
  - Pain [Unknown]
  - Abdominal pain [Unknown]
  - Onychalgia [Unknown]
